FAERS Safety Report 24966814 (Version 6)
Quarter: 2025Q2

REPORT INFORMATION
  Report Type: Spontaneous
  Country: US (occurrence: US)
  Receive Date: 20250213
  Receipt Date: 20250610
  Transmission Date: 20250717
  Serious: No
  Sender: BRISTOL-MYERS SQUIBB COMPANY
  Company Number: US-BRISTOL-MYERS SQUIBB COMPANY-2025-021289

PATIENT
  Age: 78 Year
  Sex: Female

DRUGS (10)
  1. REVLIMID [Suspect]
     Active Substance: LENALIDOMIDE
     Indication: Monoclonal gammopathy
     Route: 048
     Dates: start: 20250213
  2. REVLIMID [Suspect]
     Active Substance: LENALIDOMIDE
     Route: 048
     Dates: start: 20250211
  3. REVLIMID [Suspect]
     Active Substance: LENALIDOMIDE
     Route: 048
     Dates: start: 20250213
  4. REVLIMID [Suspect]
     Active Substance: LENALIDOMIDE
     Route: 048
     Dates: start: 20250212
  5. ASPIRIN [Concomitant]
     Active Substance: ASPIRIN
     Indication: Product used for unknown indication
  6. CITALOPRAM [Concomitant]
     Active Substance: CITALOPRAM
     Indication: Product used for unknown indication
  7. VITAMINS [Concomitant]
     Active Substance: VITAMINS
     Indication: Product used for unknown indication
  8. VITAMIN B12 [Concomitant]
     Active Substance: CYANOCOBALAMIN
     Indication: Product used for unknown indication
  9. CHOLECALCIFEROL [Concomitant]
     Active Substance: CHOLECALCIFEROL
     Indication: Product used for unknown indication
  10. WELLBUTRIN XL [Concomitant]
     Active Substance: BUPROPION HYDROCHLORIDE
     Indication: Product used for unknown indication

REACTIONS (9)
  - Off label use [Unknown]
  - Night sweats [Not Recovered/Not Resolved]
  - Product use issue [Unknown]
  - Fatigue [Not Recovered/Not Resolved]
  - Weight decreased [Not Recovered/Not Resolved]
  - Skin warm [Not Recovered/Not Resolved]
  - Sticky skin [Not Recovered/Not Resolved]
  - Hyperhidrosis [Not Recovered/Not Resolved]
  - Feeling hot [Not Recovered/Not Resolved]

NARRATIVE: CASE EVENT DATE: 20250401
